FAERS Safety Report 15716846 (Version 1)
Quarter: 2018Q4

REPORT INFORMATION
  Report Type: Spontaneous
  Country: IT (occurrence: IT)
  Receive Date: 20181213
  Receipt Date: 20181213
  Transmission Date: 20190205
  Serious: Yes (Hospitalization)
  Sender: FDA-Public Use
  Company Number: IT-AUROBINDO-AUR-APL-2018-059629

PATIENT
  Age: 27 Year
  Sex: Male

DRUGS (2)
  1. FUCIDIN (FUSIDIC ACID) [Suspect]
     Active Substance: FUSIDIC ACID
     Indication: STAPHYLOCOCCAL IMPETIGO
     Dosage: UNK
     Route: 061
     Dates: start: 20180809
  2. AMOXICILLIN. [Suspect]
     Active Substance: AMOXICILLIN
     Indication: STAPHYLOCOCCAL IMPETIGO
     Dosage: UNK
     Route: 048
     Dates: start: 20180809

REACTIONS (1)
  - Eyelid oedema [Not Recovered/Not Resolved]

NARRATIVE: CASE EVENT DATE: 20180810
